FAERS Safety Report 5662493-1 (Version None)
Quarter: 2008Q1

REPORT INFORMATION
  Report Type: 
  Country: None (occurrence: None)
  Receive Date: 20080310
  Receipt Date: 20080310
  Transmission Date: 20080703
  Serious: Yes (Hospitalization)
  Sender: FDA-Public Use
  Company Number: None

PATIENT
  Sex: Male
  Weight: 109.3169 kg

DRUGS (1)
  1. NICOTROL [Suspect]
     Indication: SMOKING CESSATION THERAPY
     Dosage: 1 SPRAY OF 10MG/ML EVERY HOUR NASAL
     Route: 045
     Dates: start: 20070710, end: 20070917

REACTIONS (1)
  - EPISTAXIS [None]
